FAERS Safety Report 5159569-4 (Version None)
Quarter: 2006Q4

REPORT INFORMATION
  Report Type: 
  Country: None (occurrence: None)
  Receive Date: 20061129
  Receipt Date: 20061115
  Transmission Date: 20070319
  Serious: Yes (Hospitalization)
  Sender: FDA-Public Use
  Company Number: US-JNJFOC-20061105850

PATIENT
  Age: 11 Month
  Sex: Male
  Weight: 9.8 kg

DRUGS (2)
  1. ACETAMINOPHEN [Suspect]
  2. ACETAMINOPHEN [Suspect]
     Indication: DRUG USE FOR UNKNOWN INDICATION
     Dosage: 1/2 TSP. PLUS POSSIBLY 2-3 TSP (STRENGTH UNKNOWN)

REACTIONS (5)
  - HEPATIC ENCEPHALOPATHY [None]
  - HEPATIC FAILURE [None]
  - OVERDOSE [None]
  - PYREXIA [None]
  - RESPIRATORY DISTRESS [None]
